FAERS Safety Report 8035828-2 (Version None)
Quarter: 2012Q1

REPORT INFORMATION
  Report Type: 
  Country: None (occurrence: None)
  Receive Date: 20120111
  Receipt Date: 20120111
  Transmission Date: 20120608
  Serious: Yes (Hospitalization)
  Sender: FDA-Public Use
  Company Number: None

PATIENT
  Age: 81 Year
  Sex: Female
  Weight: 70.76 kg

DRUGS (1)
  1. HYOSCYAMINE [Suspect]
     Indication: ABDOMINAL PAIN
     Dosage: O.125MG
     Route: 002
     Dates: start: 20111217, end: 20111230

REACTIONS (4)
  - DIZZINESS [None]
  - GASTRIC DISORDER [None]
  - DISEASE RECURRENCE [None]
  - VERTIGO [None]
